FAERS Safety Report 20291083 (Version 2)
Quarter: 2022Q1

REPORT INFORMATION
  Report Type: Report from Study
  Country: RU (occurrence: RU)
  Receive Date: 20220104
  Receipt Date: 20220122
  Transmission Date: 20220423
  Serious: Yes (Other)
  Sender: FDA-Public Use
  Company Number: RU-NOVARTISPH-NVSC2021RU301328

PATIENT

DRUGS (2)
  1. SACUBITRIL\VALSARTAN [Suspect]
     Active Substance: SACUBITRIL\VALSARTAN
     Indication: Cardiac failure
     Dosage: 50 MG  (25.7 MG+ 24.3MG) 50 MG IN THE MORNING AND 50 IN THE EVENING
     Route: 065
     Dates: start: 20211120, end: 20211230
  2. SACUBITRIL\VALSARTAN [Suspect]
     Active Substance: SACUBITRIL\VALSARTAN
     Indication: Hypertension

REACTIONS (3)
  - Laryngeal oedema [Recovering/Resolving]
  - Pharyngeal oedema [Unknown]
  - Enlarged uvula [Unknown]
